FAERS Safety Report 19443396 (Version 2)
Quarter: 2021Q3

REPORT INFORMATION
  Report Type: Spontaneous
  Country: US (occurrence: US)
  Receive Date: 20210621
  Receipt Date: 20210707
  Transmission Date: 20211014
  Serious: Yes (Other)
  Sender: FDA-Public Use
  Company Number: US-PFIZER INC-03H-163-0218589-00

PATIENT
  Age: 2 Day
  Sex: Male
  Weight: 1.79 kg

DRUGS (4)
  1. MIDAZOLAM. [Concomitant]
     Active Substance: MIDAZOLAM
     Indication: ENDOTRACHEAL INTUBATION
     Dosage: 80 UG/KG
     Route: 042
  2. MORPHINE SULFATE. [Suspect]
     Active Substance: MORPHINE SULFATE
     Indication: ANALGESIC THERAPY
     Dosage: 80 UG/KG
     Route: 042
  3. MORPHINE SULFATE. [Suspect]
     Active Substance: MORPHINE SULFATE
     Indication: CHEST TUBE INSERTION
     Dosage: 80 UG/KG
     Route: 042
  4. MORPHINE SULFATE. [Suspect]
     Active Substance: MORPHINE SULFATE
     Indication: ENDOTRACHEAL INTUBATION
     Dosage: 80 UG/KG
     Route: 042

REACTIONS (5)
  - Blood creatinine increased [Recovered/Resolved]
  - Bladder dilatation [Recovered/Resolved]
  - Hydronephrosis [Recovered/Resolved]
  - Oliguria [Recovered/Resolved]
  - Urinary retention [Recovered/Resolved]
